FAERS Safety Report 16395857 (Version 2)
Quarter: 2019Q2

REPORT INFORMATION
  Report Type: Report from Study
  Country: US (occurrence: US)
  Receive Date: 20190605
  Receipt Date: 20190618
  Transmission Date: 20190711
  Serious: Yes (Other)
  Sender: FDA-Public Use
  Company Number: PHEH2019US023226

PATIENT
  Sex: Female

DRUGS (2)
  1. COSENTYX [Suspect]
     Active Substance: SECUKINUMAB
     Indication: PSORIATIC ARTHROPATHY
     Dosage: 300 MG, QMO
     Route: 058
  2. COSENTYX [Suspect]
     Active Substance: SECUKINUMAB
     Indication: PSORIASIS

REACTIONS (5)
  - Infection [Unknown]
  - Sinusitis [Recovered/Resolved]
  - Psoriasis [Recovering/Resolving]
  - Pharyngitis streptococcal [Recovered/Resolved]
  - Pain of skin [Recovering/Resolving]
